FAERS Safety Report 18950601 (Version 1)
Quarter: 2021Q1

REPORT INFORMATION
  Report Type: Spontaneous
  Country: US (occurrence: US)
  Receive Date: 20210228
  Receipt Date: 20210228
  Transmission Date: 20210420
  Serious: No
  Sender: FDA-Public Use
  Company Number: US-ROCHE-2673196

PATIENT
  Age: 16 Year
  Sex: Female

DRUGS (2)
  1. ILARIS [Concomitant]
     Active Substance: CANAKINUMAB
  2. XOLAIR [Suspect]
     Active Substance: OMALIZUMAB
     Indication: IDIOPATHIC URTICARIA
     Dosage: ONGOING: NO
     Route: 058
     Dates: start: 20190418, end: 20200903

REACTIONS (2)
  - No adverse event [Unknown]
  - Off label use [Unknown]
